FAERS Safety Report 6430209-7 (Version None)
Quarter: 2009Q4

REPORT INFORMATION
  Report Type: 
  Country: None (occurrence: None)
  Receive Date: 20091106
  Receipt Date: 20091027
  Transmission Date: 20100525
  Serious: Yes (Hospitalization)
  Sender: FDA-Public Use
  Company Number: US-ROCHE-664744

PATIENT
  Sex: Male
  Weight: 93.4 kg

DRUGS (1)
  1. CAPECITABINE [Suspect]
     Route: 048
     Dates: start: 20090612, end: 20090710

REACTIONS (1)
  - ROAD TRAFFIC ACCIDENT [None]
